FAERS Safety Report 18299293 (Version 1)
Quarter: 2020Q3

REPORT INFORMATION
  Report Type: Spontaneous
  Country: ES (occurrence: ES)
  Receive Date: 20200922
  Receipt Date: 20200922
  Transmission Date: 20201103
  Serious: Yes (Other)
  Sender: FDA-Public Use
  Company Number: ES-US-PROVELL PHARMACEUTICALS LLC-E2B_90080162

PATIENT
  Sex: Female

DRUGS (2)
  1. EUTIROX [Suspect]
     Active Substance: LEVOTHYROXINE SODIUM
     Indication: PRODUCT USED FOR UNKNOWN INDICATION
     Dates: start: 2020
  2. EUTIROX [Suspect]
     Active Substance: LEVOTHYROXINE SODIUM
     Dates: start: 2020

REACTIONS (6)
  - Palpitations [Unknown]
  - Dysphagia [Unknown]
  - Fatigue [Unknown]
  - Dizziness postural [Unknown]
  - Anxiety [Unknown]
  - Confusional state [Unknown]

NARRATIVE: CASE EVENT DATE: 2020
